FAERS Safety Report 9720903 (Version 6)
Quarter: 2014Q4

REPORT INFORMATION
  Report Type: Spontaneous
  Country: US (occurrence: US)
  Receive Date: 20131129
  Receipt Date: 20141120
  Transmission Date: 20150529
  Serious: Yes (Hospitalization, Disabling, Other)
  Sender: FDA-Public Use
  Company Number: US-009507513-1311USA011292

PATIENT
  Sex: Male

DRUGS (1)
  1. FOSAMAX [Suspect]
     Active Substance: ALENDRONATE SODIUM
     Indication: OSTEOPOROSIS
     Dosage: 70 MG, QW
     Route: 048
     Dates: start: 199908, end: 20060818

REACTIONS (18)
  - Transitional vertebrae [Unknown]
  - Type 2 diabetes mellitus [Unknown]
  - Open reduction of fracture [Unknown]
  - Ankle operation [Unknown]
  - Surgery [Unknown]
  - Fall [Unknown]
  - Hypercholesterolaemia [Unknown]
  - Osteoarthritis [Unknown]
  - Spinal laminectomy [Unknown]
  - Myocardial ischaemia [Not Recovered/Not Resolved]
  - Decubitus ulcer [Unknown]
  - Wound [Unknown]
  - Ankle fracture [Unknown]
  - Back pain [Unknown]
  - Surgery [Unknown]
  - Femur fracture [Unknown]
  - Spinal compression fracture [Unknown]
  - Incisional drainage [Unknown]

NARRATIVE: CASE EVENT DATE: 2000
